FAERS Safety Report 4338674-6 (Version None)
Quarter: 2004Q2

REPORT INFORMATION
  Report Type: 
  Country: None (occurrence: None)
  Receive Date: 20040409
  Receipt Date: 20040323
  Transmission Date: 20050107
  Serious: Yes (Hospitalization)
  Sender: FDA-Public Use
  Company Number: DSA_24024_2004

PATIENT
  Age: 72 Year
  Sex: Male

DRUGS (10)
  1. HERBESSER R [Suspect]
     Indication: HYPERTENSION
     Dosage: 100 MG Q DAY PO
     Route: 048
     Dates: start: 20031008, end: 20031020
  2. LASIX [Concomitant]
  3. ANGINAL [Concomitant]
  4. KALGUT [Concomitant]
  5. MEVALOTIN [Concomitant]
  6. THEO-DUR [Concomitant]
  7. GASTER [Concomitant]
  8. EUGLUCON [Concomitant]
  9. PANALDINE [Concomitant]
  10. AMLODIPINE BESYLATE [Concomitant]

REACTIONS (10)
  - ASTHMA [None]
  - BLOOD ALKALINE PHOSPHATASE INCREASED [None]
  - BLOOD LACTATE DEHYDROGENASE INCREASED [None]
  - CONDITION AGGRAVATED [None]
  - DRUG ERUPTION [None]
  - FACE OEDEMA [None]
  - LIVER FUNCTION TEST ABNORMAL [None]
  - PLATELET COUNT DECREASED [None]
  - SKIN TEST POSITIVE [None]
  - WHITE BLOOD CELL COUNT DECREASED [None]
